FAERS Safety Report 8246661-0 (Version None)
Quarter: 2012Q1

REPORT INFORMATION
  Report Type: 
  Country: None (occurrence: None)
  Receive Date: 20120330
  Receipt Date: 20120323
  Transmission Date: 20120608
  Serious: Yes (Hospitalization)
  Sender: FDA-Public Use
  Company Number: US-AMGEN-USASP2012018948

PATIENT
  Age: 54 Year
  Sex: Female

DRUGS (2)
  1. ENBREL [Suspect]
     Indication: RHEUMATOID ARTHRITIS
     Dosage: 50 MG, QWK
     Dates: start: 20061201, end: 20110301
  2. METHOTREXATE [Concomitant]
     Dosage: 1 MG, UNK
     Dates: start: 20050101

REACTIONS (13)
  - PAIN [None]
  - COSTOCHONDRITIS [None]
  - LIMB DEFORMITY [None]
  - FATIGUE [None]
  - FALL [None]
  - RED BLOOD CELL SEDIMENTATION RATE INCREASED [None]
  - SCIATICA [None]
  - ASTHENIA [None]
  - RHEUMATOID ARTHRITIS [None]
  - ERYTHEMA [None]
  - PELVIC DEFORMITY [None]
  - JOINT SWELLING [None]
  - MUSCULAR WEAKNESS [None]
